FAERS Safety Report 5374106-7 (Version None)
Quarter: 2007Q2

REPORT INFORMATION
  Report Type: 
  Country: None (occurrence: None)
  Receive Date: 20070627
  Receipt Date: 20070622
  Transmission Date: 20071010
  Serious: Yes (Life-Threatening, Other)
  Sender: FDA-Public Use
  Company Number: E2020-01178-SPO-JP

PATIENT
  Age: 80 Year
  Sex: Female
  Weight: 31 kg

DRUGS (2)
  1. ARICEPT [Suspect]
     Indication: DEMENTIA ALZHEIMER'S TYPE
     Dosage: 5 MG, 1 IN 1 D, ORAL
     Route: 048
     Dates: start: 20061201, end: 20070401
  2. HEAVY MAGNESIUM OXIDE (MAGNESIUM OXIDE HEAVY) [Concomitant]

REACTIONS (9)
  - BRADYCARDIA [None]
  - CARDIO-RESPIRATORY ARREST [None]
  - CONDITION AGGRAVATED [None]
  - DRUG INEFFECTIVE [None]
  - FALL [None]
  - HYPOKALAEMIA [None]
  - LOSS OF CONSCIOUSNESS [None]
  - PNEUMONIA ASPIRATION [None]
  - SUDDEN DEATH [None]
